FAERS Safety Report 17532516 (Version 1)
Quarter: 2020Q1

REPORT INFORMATION
  Report Type: Spontaneous
  Country: US (occurrence: US)
  Receive Date: 20200304
  Receipt Date: 20200304
  Transmission Date: 20200409
  Serious: Yes (Other)
  Sender: FDA-Public Use
  Company Number: None

PATIENT
  Age: 19 Year
  Sex: Female
  Weight: 69.8 kg

DRUGS (1)
  1. FERRLECIT [Suspect]
     Active Substance: SODIUM FERRIC GLUCONATE COMPLEX
     Indication: IRON DEFICIENCY ANAEMIA
     Dosage: ?          OTHER ROUTE:IVPB?
     Dates: start: 20200302, end: 20200302

REACTIONS (3)
  - Muscle spasms [None]
  - Pain of skin [None]
  - Urticaria [None]

NARRATIVE: CASE EVENT DATE: 20200302
